FAERS Safety Report 9290538 (Version 1)
Quarter: 2013Q2

REPORT INFORMATION
  Report Type: Spontaneous
  Country: US (occurrence: None)
  Receive Date: 20130514
  Receipt Date: 20130514
  Transmission Date: 20140414
  Serious: Yes (Hospitalization)
  Sender: FDA-Public Use
  Company Number: None

PATIENT
  Age: 55 Year
  Sex: Male
  Weight: 69.5 kg

DRUGS (1)
  1. SULFAMETHOXAZOLE/TRIMETHOPRIM [Suspect]
     Indication: SOFT TISSUE INFECTION
     Dosage: 2 TAB
     Route: 048
     Dates: start: 20130430, end: 20130505

REACTIONS (2)
  - Erythema multiforme [None]
  - Drug reaction with eosinophilia and systemic symptoms [None]
